FAERS Safety Report 11223273 (Version 2)
Quarter: 2015Q3

REPORT INFORMATION
  Report Type: Report from Study
  Country: US (occurrence: US)
  Receive Date: 20150626
  Receipt Date: 20150724
  Transmission Date: 20151125
  Serious: Yes (Other)
  Sender: FDA-Public Use
  Company Number: US-MERCK-1506USA013965

PATIENT

DRUGS (2)
  1. SYLATRON [Suspect]
     Active Substance: PEGINTERFERON ALFA-2B
     Indication: MALIGNANT MELANOMA
     Dosage: 3 MICROGRAM PER KILOGRAM, QW
     Route: 058
  2. DECITABINE. [Suspect]
     Active Substance: DECITABINE
     Indication: MALIGNANT MELANOMA
     Dosage: 15 MG/M2, QD DAYS 1-5 EVERY 28 DAYS
     Route: 042

REACTIONS (1)
  - Pulmonary embolism [Unknown]
